FAERS Safety Report 5331871-2 (Version None)
Quarter: 2007Q2

REPORT INFORMATION
  Report Type: 
  Country: None (occurrence: None)
  Receive Date: 20070523
  Receipt Date: 20070517
  Transmission Date: 20071010
  Serious: Yes (Other)
  Sender: FDA-Public Use
  Company Number: HQWYE255317MAY07

PATIENT
  Age: 81 Year
  Sex: Female

DRUGS (4)
  1. INDERAL [Suspect]
     Dosage: DOSE UNSPECIFIED
     Route: 048
     Dates: start: 20070428, end: 20070509
  2. PRIMPERAN INJ [Concomitant]
     Dosage: DOSE UNSPECIFIED
     Route: 048
     Dates: start: 20070428
  3. PRANLUKAST [Concomitant]
     Dosage: DOSE UNSPECIFIED
     Route: 048
     Dates: start: 20070428
  4. GASMOTIN [Concomitant]
     Dosage: DOSE UNSPECIFIED
     Route: 048
     Dates: start: 20070428

REACTIONS (1)
  - THROMBOCYTOPENIA [None]
